FAERS Safety Report 6200597-5 (Version None)
Quarter: 2009Q2

REPORT INFORMATION
  Report Type: 
  Country: None (occurrence: None)
  Receive Date: 20090522
  Receipt Date: 20090508
  Transmission Date: 20091009
  Serious: Yes (Hospitalization)
  Sender: FDA-Public Use
  Company Number: CO-GENENTECH-282795

PATIENT
  Age: 60 Year
  Sex: Male

DRUGS (4)
  1. MABTHERA [Suspect]
     Indication: POLYMYOSITIS
     Dosage: 1 G, Q15D
     Route: 042
     Dates: start: 20090401
  2. PREDNISONE [Concomitant]
     Indication: DRUG USE FOR UNKNOWN INDICATION
  3. OMEPRAZOLE [Concomitant]
     Indication: DRUG USE FOR UNKNOWN INDICATION
  4. AZATHIOPRINE [Concomitant]
     Indication: DRUG USE FOR UNKNOWN INDICATION

REACTIONS (3)
  - HYPOTENSION [None]
  - PYREXIA [None]
  - THROMBOCYTOPENIA [None]
